FAERS Safety Report 8567848-3 (Version None)
Quarter: 2012Q3

REPORT INFORMATION
  Report Type: 
  Country: None (occurrence: None)
  Receive Date: 20120803
  Receipt Date: 20120719
  Transmission Date: 20120928
  Serious: Yes (Other)
  Sender: FDA-Public Use
  Company Number: CHPA2012US016229

PATIENT
  Age: 88 Year
  Sex: Male

DRUGS (9)
  1. PLAVIX [Concomitant]
     Dosage: UNK, UNK
  2. ASPIRIN [Concomitant]
     Dosage: 1 DF, QD
  3. BENEFIBER W/ WHEAT DEXTRIN [Suspect]
     Indication: CONSTIPATION
     Dosage: 3 TSP, QAM
     Route: 048
     Dates: start: 20080101
  4. DRUG THERAPY NOS [Concomitant]
     Indication: PROSTATIC DISORDER
     Dosage: UNK, UNK
  5. DRUG THERAPY NOS [Suspect]
     Indication: MACULAR DEGENERATION
     Dosage: UNK, UNK
  6. CARDIAC THERAPY [Concomitant]
     Indication: CARDIAC DISORDER
     Dosage: UNK, UNK
  7. DRUG THERAPY NOS [Concomitant]
     Indication: BLOOD CHOLESTEROL
     Dosage: UNK, UNK
  8. DOCUSATE SODIUM [Concomitant]
     Indication: CONSTIPATION
     Dosage: UNK, UNK
  9. ALLOPURINOL [Concomitant]
     Indication: GOUT
     Dosage: UNK, UNK

REACTIONS (5)
  - FAECAL INCONTINENCE [None]
  - INCORRECT DOSE ADMINISTERED [None]
  - MACULAR DEGENERATION [None]
  - OFF LABEL USE [None]
  - CONSTIPATION [None]
